FAERS Safety Report 9674647 (Version 2)
Quarter: 2013Q4

REPORT INFORMATION
  Report Type: Spontaneous
  Country: US (occurrence: US)
  Receive Date: 20131107
  Receipt Date: 20131203
  Transmission Date: 20140711
  Serious: Yes (Hospitalization)
  Sender: FDA-Public Use
  Company Number: US-JNJFOC-20131017343

PATIENT
  Sex: Male
  Weight: 65.32 kg

DRUGS (4)
  1. DURAGESIC [Suspect]
     Indication: ANALGESIC THERAPY
     Route: 062
     Dates: start: 201210, end: 201301
  2. DURAGESIC [Suspect]
     Indication: ANALGESIC THERAPY
     Route: 062
     Dates: start: 201301
  3. PERCOCET [Concomitant]
     Indication: PAIN
     Dosage: 5MG-325 MG EVERY FOUR HOURS AS NEEDED
     Route: 048
     Dates: start: 2013
  4. ZYRTEC [Concomitant]
     Indication: MULTIPLE ALLERGIES
     Route: 048
     Dates: start: 2013

REACTIONS (9)
  - Surgery [Recovered/Resolved]
  - Pain [Recovered/Resolved]
  - Wrong technique in drug usage process [Unknown]
  - Drug dose omission [Recovered/Resolved]
  - Drug ineffective [Unknown]
  - Product quality issue [Unknown]
  - Inappropriate schedule of drug administration [Unknown]
  - Malaise [Unknown]
  - Eating disorder [Unknown]
